FAERS Safety Report 7820322-1 (Version None)
Quarter: 2011Q4

REPORT INFORMATION
  Report Type: 
  Country: None (occurrence: None)
  Receive Date: 20111018
  Receipt Date: 20111013
  Transmission Date: 20120403
  Serious: Yes (Hospitalization, Other)
  Sender: FDA-Public Use
  Company Number: US-AMGEN-USASP2011046389

PATIENT
  Sex: Female

DRUGS (2)
  1. TREXALL [Concomitant]
     Dosage: 1 MG, QWK
  2. ENBREL [Suspect]
     Indication: RHEUMATOID ARTHRITIS
     Dosage: 50 MG, UNK
     Route: 058
     Dates: start: 20081211

REACTIONS (7)
  - NAUSEA [None]
  - DYSPNOEA [None]
  - OXYGEN SATURATION ABNORMAL [None]
  - VOMITING [None]
  - NASOPHARYNGITIS [None]
  - ASTHMA [None]
  - PYREXIA [None]
